FAERS Safety Report 5566889-8 (Version None)
Quarter: 2007Q4

REPORT INFORMATION
  Report Type: 
  Country: None (occurrence: None)
  Receive Date: 20071219
  Receipt Date: 20061120
  Transmission Date: 20080405
  Serious: No
  Sender: FDA-Public Use
  Company Number: US-BRISTOL-MYERS SQUIBB COMPANY-13584883

PATIENT
  Age: 54 Year
  Sex: Female
  Weight: 85 kg

DRUGS (4)
  1. PRAVACHOL [Suspect]
     Indication: HYPERLIPIDAEMIA
     Route: 048
     Dates: start: 20061104, end: 20061109
  2. TAVANIC [Concomitant]
  3. AZO GANTRISIN [Concomitant]
  4. BUSCOPAN PLUS [Concomitant]
     Indication: URINARY TRACT INFECTION

REACTIONS (2)
  - HYPERLIPIDAEMIA [None]
  - MYALGIA [None]
